FAERS Safety Report 17307850 (Version 1)
Quarter: 2020Q1

REPORT INFORMATION
  Report Type: Spontaneous
  Country: US (occurrence: US)
  Receive Date: 20200106
  Receipt Date: 20200106
  Transmission Date: 20200409
  Serious: Yes (Life-Threatening)
  Sender: FDA-Public Use
  Company Number: None

PATIENT
  Age: 90 Year
  Sex: Male
  Weight: 76.2 kg

DRUGS (1)
  1. IRON DEXTRAN (IRON DEXTRAN (EQV-DEXFERRUM) 50MG/ML INJ [Suspect]
     Active Substance: IRON DEXTRAN
     Indication: ANAEMIA
     Route: 042
     Dates: start: 20191025, end: 20191025

REACTIONS (4)
  - Chest pain [None]
  - Pain in extremity [None]
  - Nausea [None]
  - Vomiting [None]

NARRATIVE: CASE EVENT DATE: 20191025
